FAERS Safety Report 5777239-6 (Version None)
Quarter: 2008Q2

REPORT INFORMATION
  Report Type: 
  Country: None (occurrence: None)
  Receive Date: 20080616
  Receipt Date: 20080603
  Transmission Date: 20081010
  Serious: Yes (Other)
  Sender: FDA-Public Use
  Company Number: 2008AL006274

PATIENT
  Age: 73 Year
  Sex: Female
  Weight: 55.3388 kg

DRUGS (5)
  1. DIGOXIN [Suspect]
     Indication: ATRIAL FIBRILLATION
     Dosage: 0.125  MG, DAILY; PO
     Route: 048
     Dates: start: 20020101
  2. PROPRANOLOL [Concomitant]
  3. BENAZEPRIL HYDROCHLORIDE [Concomitant]
  4. ZOCOR [Concomitant]
  5. COUMADIN [Concomitant]

REACTIONS (8)
  - ASTHENIA [None]
  - CHROMATOPSIA [None]
  - DIARRHOEA [None]
  - DISORIENTATION [None]
  - DIZZINESS [None]
  - IRRITABILITY [None]
  - NAUSEA [None]
  - THERAPEUTIC AGENT TOXICITY [None]
